FAERS Safety Report 4294339-0 (Version None)
Quarter: 2004Q1

REPORT INFORMATION
  Report Type: 
  Country: None (occurrence: None)
  Receive Date: 20040211
  Receipt Date: 20030610
  Transmission Date: 20041129
  Serious: Yes (Hospitalization)
  Sender: FDA-Public Use
  Company Number: A0411951A

PATIENT
  Age: 59 Year
  Sex: Male

DRUGS (2)
  1. MELPHALAN INJECTION (MELPHALAN) [Suspect]
     Indication: MULTIPLE MYELOMA
     Dosage: 400 MG, INTRAVENOUS
     Route: 042
     Dates: start: 20030410, end: 20030410
  2. THALIDOMIDE (THALIDOMIDE) [Suspect]
     Indication: MULTIPLE MYELOMA
     Dosage: 400 MG, INTRAVEOUS, ORAL
     Route: 048
     Dates: start: 20020730, end: 20020811

REACTIONS (17)
  - ABDOMINAL PAIN [None]
  - ACUTE SINUSITIS [None]
  - ANAEMIA [None]
  - ASTHENIA [None]
  - BLOOD PRESSURE INCREASED [None]
  - C-REACTIVE PROTEIN INCREASED [None]
  - CENTRAL LINE INFECTION [None]
  - COUGH [None]
  - DIARRHOEA [None]
  - LOBAR PNEUMONIA [None]
  - MALAISE [None]
  - NEUTROPENIA [None]
  - PLEURAL EFFUSION [None]
  - PYREXIA [None]
  - RESPIRATORY DISTRESS [None]
  - STAPHYLOCOCCAL INFECTION [None]
  - THROMBOCYTOPENIA [None]
